FAERS Safety Report 24819087 (Version 2)
Quarter: 2025Q2

REPORT INFORMATION
  Report Type: Spontaneous
  Country: FR (occurrence: None)
  Receive Date: 20250108
  Receipt Date: 20250401
  Transmission Date: 20250716
  Serious: Yes (Other)
  Sender: ORION
  Company Number: FR-Orion Corporation ORION PHARMA-TREX2025-0005

PATIENT
  Age: 78 Year
  Sex: Female

DRUGS (15)
  1. METHOTREXATE SODIUM [Suspect]
     Active Substance: METHOTREXATE SODIUM
     Indication: Rheumatoid arthritis
     Dosage: STRENGTH 10 MG (1.5 TABLETS) PLUS STRENGTH 2.5 MG (1 TABLET)
  2. METHOTREXATE SODIUM [Suspect]
     Active Substance: METHOTREXATE SODIUM
     Dates: start: 20241023, end: 20241028
  3. METHOTREXATE SODIUM [Suspect]
     Active Substance: METHOTREXATE SODIUM
     Dates: start: 202410, end: 20241124
  4. METHOTREXATE SODIUM [Suspect]
     Active Substance: METHOTREXATE SODIUM
     Dosage: ON FRIDAY
     Dates: start: 20241206, end: 20250106
  5. METHOTREXATE SODIUM [Suspect]
     Active Substance: METHOTREXATE SODIUM
     Dates: start: 20250206
  6. IOMERON [Suspect]
     Active Substance: IOMEPROL
     Indication: Arteriogram carotid
     Dates: start: 20241030
  7. IOMERON [Suspect]
     Active Substance: IOMEPROL
     Dates: start: 20241122
  8. ENOXAPARIN [Concomitant]
     Active Substance: ENOXAPARIN
     Indication: Anticoagulant therapy
     Dates: start: 20241023, end: 20241026
  9. HYDROCHLOROTHIAZIDE\IRBESARTAN [Concomitant]
     Active Substance: HYDROCHLOROTHIAZIDE\IRBESARTAN
  10. ATORVASTATIN [Concomitant]
     Active Substance: ATORVASTATIN
  11. DOLIPRANE [Concomitant]
     Active Substance: ACETAMINOPHEN
  12. CLOPIDOGREL [Concomitant]
     Active Substance: CLOPIDOGREL BISULFATE
  13. OMEPRAZOLE [Concomitant]
     Active Substance: OMEPRAZOLE
  14. METHOTREXATE [Concomitant]
     Active Substance: METHOTREXATE
  15. TERIPARATIDE [Concomitant]
     Active Substance: TERIPARATIDE
     Dosage: 1 PEN

REACTIONS (9)
  - Accidental overdose [Recovered/Resolved]
  - Toxicity to various agents [Recovered/Resolved]
  - Acute kidney injury [Recovered/Resolved]
  - Pancytopenia [Unknown]
  - Product prescribing error [Unknown]
  - Mouth haemorrhage [Unknown]
  - Dysphagia [Unknown]
  - Herpes virus infection [Unknown]
  - Eosinophilia [Recovering/Resolving]

NARRATIVE: CASE EVENT DATE: 20241023
